FAERS Safety Report 23141632 (Version 2)
Quarter: 2023Q4

REPORT INFORMATION
  Report Type: Spontaneous
  Country: CN (occurrence: CN)
  Receive Date: 20231103
  Receipt Date: 20231115
  Transmission Date: 20240110
  Serious: Yes (Other)
  Sender: FDA-Public Use
  Company Number: CN-BAXTER-2023BAX034613

PATIENT
  Age: 78 Year
  Sex: Male

DRUGS (3)
  1. DEXTROSE\SODIUM CHLORIDE [Suspect]
     Active Substance: DEXTROSE\SODIUM CHLORIDE
     Dosage: 500 ML, INJECTION, ON THE MORNING OF THE OPERATION DAY
     Route: 065
  2. DEXTROSE [Suspect]
     Active Substance: DEXTROSE\DEXTROSE MONOHYDRATE
     Dosage: 500 ML OF 5%, INJECTION, ON THE MORNING OF THE OPERATION DAY
     Route: 065
  3. INSULIN NOS [Concomitant]
     Active Substance: INSULIN NOS
     Dosage: INFUSION OF 12 U, ON THE MORNING OF THE OPERATION DAY
     Route: 042

REACTIONS (4)
  - Euglycaemic diabetic ketoacidosis [Recovered/Resolved]
  - Dyspnoea [Recovered/Resolved]
  - Abdominal pain [Recovered/Resolved]
  - Back pain [Recovered/Resolved]
